FAERS Safety Report 6358886-X (Version None)
Quarter: 2009Q3

REPORT INFORMATION
  Report Type: 
  Country: None (occurrence: None)
  Receive Date: 20090916
  Receipt Date: 20090821
  Transmission Date: 20100115
  Serious: No
  Sender: FDA-Public Use
  Company Number: US-ABBOTT-09P-163-0594123-00

PATIENT
  Sex: Female
  Weight: 63.56 kg

DRUGS (9)
  1. TRILIPIX [Suspect]
     Indication: BLOOD CHOLESTEROL INCREASED
     Route: 048
     Dates: start: 20090819, end: 20090819
  2. TRILIPIX [Suspect]
     Indication: BLOOD TRIGLYCERIDES INCREASED
  3. TRILIPIX [Suspect]
     Indication: HIGH DENSITY LIPOPROTEIN DECREASED
  4. VALIUM [Concomitant]
     Indication: ANXIETY
     Route: 048
  5. LISINOPRIL [Concomitant]
     Indication: HYPERTENSION
     Route: 048
  6. AMODIPINE [Concomitant]
     Indication: HYPERTENSION
     Route: 048
  7. CALCIUM SUPPLEMENT [Concomitant]
     Indication: MINERAL SUPPLEMENTATION
     Route: 048
  8. CENTRUM SILVER [Concomitant]
     Indication: VITAMIN SUPPLEMENTATION
     Route: 048
  9. ASPIRIN [Concomitant]
     Indication: CARDIOVASCULAR DISORDER
     Route: 048

REACTIONS (3)
  - ERYTHEMA [None]
  - FEELING ABNORMAL [None]
  - FEELING HOT [None]
